FAERS Safety Report 23914465 (Version 2)
Quarter: 2025Q1

REPORT INFORMATION
  Report Type: Spontaneous
  Country: JP (occurrence: JP)
  Receive Date: 20240529
  Receipt Date: 20250311
  Transmission Date: 20250409
  Serious: Yes (Death, Other)
  Sender: RANBAXY
  Company Number: JP-SUNPHARMA-2024R1-446731AA

PATIENT
  Age: 47 Year
  Sex: Male
  Weight: 89 kg

DRUGS (8)
  1. ILUMYA [Suspect]
     Active Substance: TILDRAKIZUMAB-ASMN
     Indication: Psoriasis
     Route: 058
     Dates: start: 20230324
  2. ILUMYA [Suspect]
     Active Substance: TILDRAKIZUMAB-ASMN
     Route: 058
     Dates: start: 20230421
  3. ILUMYA [Suspect]
     Active Substance: TILDRAKIZUMAB-ASMN
     Route: 058
     Dates: start: 20230714
  4. ILUMYA [Suspect]
     Active Substance: TILDRAKIZUMAB-ASMN
     Route: 058
     Dates: start: 20231006
  5. ILUMYA [Suspect]
     Active Substance: TILDRAKIZUMAB-ASMN
     Route: 058
     Dates: start: 20240105
  6. ILUMYA [Suspect]
     Active Substance: TILDRAKIZUMAB-ASMN
     Route: 058
     Dates: start: 20240329
  7. BETAMETHASONE DIPROPIONATE\CALCIPOTRIENE MONOHYDRATE [Concomitant]
     Active Substance: BETAMETHASONE DIPROPIONATE\CALCIPOTRIENE MONOHYDRATE
     Indication: Psoriasis
     Dosage: UNK, QD
     Route: 062
  8. RUPAFIN tablet 10 mg [Concomitant]
     Indication: Psoriasis
     Dosage: QD
     Route: 048

REACTIONS (1)
  - Pneumonia aspiration [Fatal]

NARRATIVE: CASE EVENT DATE: 20240416
